FAERS Safety Report 25095550 (Version 3)
Quarter: 2025Q2

REPORT INFORMATION
  Report Type: Report from Study
  Country: US (occurrence: US)
  Receive Date: 20250319
  Receipt Date: 20250416
  Transmission Date: 20250717
  Serious: Yes (Other)
  Sender: ABBVIE
  Company Number: US-ABBVIE-6175092

PATIENT
  Age: 69 Year
  Sex: Female
  Weight: 72.5 kg

DRUGS (2)
  1. RINVOQ [Suspect]
     Active Substance: UPADACITINIB
     Indication: Rheumatoid arthritis
     Dosage: FORM STRENGTH: 15 MILLIGRAMS
     Route: 048
     Dates: start: 20250221
  2. RINVOQ [Suspect]
     Active Substance: UPADACITINIB
     Indication: Rheumatoid arthritis
     Dosage: FORM STRENGTH: 15 MILLIGRAMS
     Route: 048
     Dates: start: 202401, end: 202410

REACTIONS (14)
  - Tooth infection [Recovered/Resolved]
  - Pancreatic cyst [Recovering/Resolving]
  - Graves^ disease [Recovering/Resolving]
  - Folliculitis [Not Recovered/Not Resolved]
  - Alopecia [Not Recovered/Not Resolved]
  - Gastrointestinal disorder [Recovering/Resolving]
  - Infection [Unknown]
  - Conjunctivitis [Recovered/Resolved]
  - Acne [Not Recovered/Not Resolved]
  - Alanine aminotransferase increased [Not Recovered/Not Resolved]
  - Dental restoration failure [Recovered/Resolved]
  - Hypothyroidism [Recovering/Resolving]
  - Arthralgia [Recovering/Resolving]
  - Facial pain [Not Recovered/Not Resolved]

NARRATIVE: CASE EVENT DATE: 20240101
